FAERS Safety Report 8927221 (Version 1)
Quarter: 2012Q4

REPORT INFORMATION
  Report Type: Report from Study
  Country: TR (occurrence: TR)
  Receive Date: 20121127
  Receipt Date: 20121127
  Transmission Date: 20130627
  Serious: Yes (Life-Threatening)
  Sender: FDA-Public Use
  Company Number: TR-ROCHE-1159983

PATIENT
  Age: 66 Year
  Sex: Female

DRUGS (1)
  1. CAPECITABINE [Suspect]
     Indication: PANCREATIC CARCINOMA
     Route: 065
     Dates: start: 20120411, end: 201211

REACTIONS (2)
  - VIIth nerve paralysis [Not Recovered/Not Resolved]
  - Hemiplegia [Not Recovered/Not Resolved]
